FAERS Safety Report 16966693 (Version 1)
Quarter: 2019Q4

REPORT INFORMATION
  Report Type: Spontaneous
  Country: US (occurrence: US)
  Receive Date: 20191028
  Receipt Date: 20191028
  Transmission Date: 20200122
  Serious: No
  Sender: FDA-Public Use
  Company Number: US-SA-2019SA295795

PATIENT

DRUGS (2)
  1. LYRICA [Concomitant]
     Active Substance: PREGABALIN
     Dosage: UNK UNK, UNK
     Route: 065
     Dates: start: 20190717, end: 20190816
  2. TAMSULOSIN HYDROCHLORIDE. [Suspect]
     Active Substance: TAMSULOSIN HYDROCHLORIDE
     Indication: PRODUCT USED FOR UNKNOWN INDICATION
     Dosage: UNK UNK, UNK
     Route: 065

REACTIONS (1)
  - Dizziness [Unknown]
